FAERS Safety Report 8051384-7 (Version None)
Quarter: 2012Q1

REPORT INFORMATION
  Report Type: 
  Country: None (occurrence: None)
  Receive Date: 20120117
  Receipt Date: 20120106
  Transmission Date: 20120608
  Serious: Yes (Hospitalization)
  Sender: FDA-Public Use
  Company Number: DE-ASTRAZENECA-2012SE01697

PATIENT
  Age: 82 Year
  Sex: Female

DRUGS (3)
  1. ASPIRIN [Concomitant]
  2. MARCUMAR [Concomitant]
  3. BRILIQUE [Suspect]
     Route: 048

REACTIONS (1)
  - ANAEMIA [None]
